FAERS Safety Report 15378605 (Version 1)
Quarter: 2018Q4

REPORT INFORMATION
  Report Type: Spontaneous
  Country: US (occurrence: US)
  Receive Date: 20180913
  Receipt Date: 20180913
  Transmission Date: 20190204
  Serious: Yes (Hospitalization, Other)
  Sender: FDA-Public Use
  Company Number: US-ASTRAZENECA-2017SE27104

PATIENT
  Age: 26947 Day
  Sex: Female
  Weight: 64.9 kg

DRUGS (8)
  1. BLINDED BENRALIZUMAB [Suspect]
     Active Substance: BENRALIZUMAB
     Indication: CHRONIC OBSTRUCTIVE PULMONARY DISEASE
     Route: 058
     Dates: start: 20151214
  2. LISINOPRIL. [Suspect]
     Active Substance: LISINOPRIL
     Indication: PULMONARY HYPERTENSION
     Route: 048
  3. LEVOTHYROXINE. [Concomitant]
     Active Substance: LEVOTHYROXINE
     Indication: THYROID DISORDER
     Route: 048
     Dates: start: 2001
  4. PROAIR HFA [Concomitant]
     Active Substance: ALBUTEROL SULFATE
     Indication: DYSPNOEA
     Dosage: AS REQUIRED (3 PUFFS SOMETIMES )
     Route: 055
     Dates: start: 2000
  5. BLINDED BENRALIZUMAB [Suspect]
     Active Substance: BENRALIZUMAB
     Indication: ASTHMA
     Route: 058
     Dates: start: 20151214
  6. MONTELUKAST [Concomitant]
     Active Substance: MONTELUKAST SODIUM
     Indication: SINUSITIS
     Route: 048
     Dates: start: 2005
  7. SINGULAIR [Concomitant]
     Active Substance: MONTELUKAST SODIUM
  8. ADVAIR HFA [Concomitant]
     Active Substance: FLUTICASONE PROPIONATE\SALMETEROL XINAFOATE
     Indication: CHRONIC OBSTRUCTIVE PULMONARY DISEASE
     Dosage: 250/50, TWICE A DAY 1 PUFF IN THE MORNING AND 1 PUFF AT NIGHT
     Route: 055
     Dates: start: 2002

REACTIONS (12)
  - Procedural intestinal perforation [Unknown]
  - Malaise [Unknown]
  - Chills [Unknown]
  - Lung disorder [Unknown]
  - Sepsis [Unknown]
  - Chronic obstructive pulmonary disease [Unknown]
  - Emphysema [Unknown]
  - Pyrexia [Unknown]
  - Urinary tract infection [Unknown]
  - Peripheral vascular disorder [Unknown]
  - Gait disturbance [Unknown]
  - General physical health deterioration [Unknown]

NARRATIVE: CASE EVENT DATE: 2017
